FAERS Safety Report 8924680 (Version 1)
Quarter: 2012Q4

REPORT INFORMATION
  Report Type: 
  Country: US (occurrence: US)
  Receive Date: 20121126
  Receipt Date: 20121126
  Transmission Date: 20130627
  Serious: Yes (Death)
  Sender: FDA-Public Use
  Company Number: US-SANOFI-AVENTIS-2011SA048946

PATIENT
  Age: 59 Year
  Sex: Male

DRUGS (1)
  1. PLAVIX [Suspect]
     Route: 048
     Dates: end: 201107

REACTIONS (1)
  - Death [Fatal]
